FAERS Safety Report 7034940-4 (Version None)
Quarter: 2010Q4

REPORT INFORMATION
  Report Type: 
  Country: None (occurrence: None)
  Receive Date: 20101008
  Receipt Date: 20101005
  Transmission Date: 20110411
  Serious: Yes (Death, Other)
  Sender: FDA-Public Use
  Company Number: US-ROCHE-729246

PATIENT

DRUGS (3)
  1. BEVACIZUMAB [Suspect]
     Indication: RECURRENT CANCER
     Dosage: DOSE ADMINISTERED ON DAY 1AND DAY 15 OF EVERY 28 DAY CYCLE.
     Route: 065
  2. CARBOPLATIN [Suspect]
     Indication: RECURRENT CANCER
     Dosage: DOSE: AUC 5 ADMINISTERED ON DAY 1 OF EACH 28 DAY CYCLE
     Route: 065
  3. DOXORUBICIN HCL [Suspect]
     Indication: RECURRENT CANCER
     Dosage: DOSE 30 MG/M2 GIVEN ON DAY 1 OF EACH 28 DAY CYCLE
     Route: 065

REACTIONS (24)
  - ABDOMINAL PAIN [None]
  - ANAEMIA [None]
  - BACK PAIN [None]
  - CHRONIC OBSTRUCTIVE PULMONARY DISEASE [None]
  - DIZZINESS [None]
  - FATIGUE [None]
  - HEADACHE [None]
  - HYDRONEPHROSIS [None]
  - HYPERTENSION [None]
  - HYPOKALAEMIA [None]
  - HYPONATRAEMIA [None]
  - LEUKOPENIA [None]
  - MOUTH ULCERATION [None]
  - NAUSEA [None]
  - NEUTROPENIA [None]
  - PALMAR-PLANTAR ERYTHRODYSAESTHESIA SYNDROME [None]
  - PROTEINURIA [None]
  - PULMONARY EMBOLISM [None]
  - SINUS HEADACHE [None]
  - STENT MALFUNCTION [None]
  - STOMATITIS [None]
  - SYNCOPE [None]
  - THROMBOCYTOPENIA [None]
  - VOMITING [None]
